FAERS Safety Report 9643519 (Version 1)
Quarter: 2013Q4

REPORT INFORMATION
  Report Type: Spontaneous
  Country: US (occurrence: US)
  Receive Date: 20131024
  Receipt Date: 20131024
  Transmission Date: 20140711
  Serious: Yes (Other)
  Sender: FDA-Public Use
  Company Number: US-PFIZER INC-2013302641

PATIENT
  Age: 62 Year
  Sex: Female
  Weight: 146.94 kg

DRUGS (4)
  1. LYRICA [Suspect]
     Indication: FIBROMYALGIA
     Dosage: 200 MG, 3X/DAY
     Route: 048
  2. LYRICA [Suspect]
     Indication: PAIN
  3. LYRICA [Suspect]
     Indication: MUSCLE SPASMS
  4. LYRICA [Suspect]
     Indication: MUSCLE SPASMS

REACTIONS (5)
  - Off label use [Unknown]
  - Breast cancer female [Recovered/Resolved]
  - Paraplegia [Unknown]
  - Chronic obstructive pulmonary disease [Not Recovered/Not Resolved]
  - Malaise [Unknown]
